FAERS Safety Report 9008612 (Version 1)
Quarter: 2013Q1

REPORT INFORMATION
  Report Type: Spontaneous
  Country: IT (occurrence: IT)
  Receive Date: 20130111
  Receipt Date: 20130111
  Transmission Date: 20140127
  Serious: No
  Sender: FDA-Public Use
  Company Number: IT-PFIZER INC-2013011250

PATIENT
  Age: 77 Year
  Sex: Female

DRUGS (5)
  1. ATENOLOL [Suspect]
     Indication: HYPERTENSION
     Dosage: 100 MG, 1X/DAY
     Route: 048
  2. FEMARA [Concomitant]
     Dosage: 2.5 MG, UNK
     Route: 065
  3. ZOLOFT [Concomitant]
     Dosage: UNK
     Route: 065
  4. METFORMIN [Concomitant]
     Dosage: UNK
     Route: 065
  5. MIRTAZAPINE [Concomitant]
     Dosage: UNK
     Route: 065

REACTIONS (2)
  - Drug ineffective [Unknown]
  - Blood pressure increased [Unknown]
